FAERS Safety Report 8266573-6 (Version None)
Quarter: 2012Q2

REPORT INFORMATION
  Report Type: 
  Country: None (occurrence: None)
  Receive Date: 20120406
  Receipt Date: 20120322
  Transmission Date: 20120825
  Serious: No
  Sender: FDA-Public Use
  Company Number: US-BAXTER-2012BAX000011

PATIENT
  Sex: Female
  Weight: 87.622 kg

DRUGS (11)
  1. EFFEXOR [Concomitant]
     Route: 048
     Dates: start: 20120215
  2. GAMMAGARD LIQUID [Suspect]
     Route: 042
     Dates: start: 20120306
  3. TOPAMAX [Concomitant]
     Route: 048
     Dates: start: 20120215
  4. MOBIC [Concomitant]
     Route: 048
     Dates: start: 20120215
  5. DECADRON [Concomitant]
     Indication: HEADACHE
  6. ZOLMITRIPTAN [Concomitant]
  7. OMEPRAZOLE [Concomitant]
     Route: 048
     Dates: start: 20110926
  8. FLEXERIL [Concomitant]
     Route: 065
  9. INDOMETHACIN [Concomitant]
     Route: 048
  10. NASONEX [Concomitant]
     Route: 045
     Dates: start: 20120109
  11. IMITREX [Concomitant]
     Indication: MIGRAINE
     Route: 058
     Dates: start: 20111201

REACTIONS (2)
  - MIGRAINE [None]
  - NECK PAIN [None]
